FAERS Safety Report 6156103-7 (Version None)
Quarter: 2009Q2

REPORT INFORMATION
  Report Type: 
  Country: None (occurrence: None)
  Receive Date: 20090415
  Receipt Date: 20090408
  Transmission Date: 20091009
  Serious: Yes (Other)
  Sender: FDA-Public Use
  Company Number: US-ROXANE LABORATORIES, INC.-2009-RO-00357RO

PATIENT
  Age: 56 Year
  Sex: Male

DRUGS (14)
  1. MORPHINE [Suspect]
     Indication: PAIN
     Route: 037
  2. MORPHINE [Suspect]
     Route: 037
  3. MORPHINE [Suspect]
     Dosage: 5MG
     Route: 037
  4. MORPHINE [Suspect]
     Route: 037
  5. SERTRALINE HCL [Suspect]
     Indication: DEPRESSION
  6. FENTANYL [Suspect]
     Indication: PAIN
     Route: 062
  7. FENTANYL [Suspect]
     Route: 037
  8. OXYCODONE HCL [Suspect]
     Indication: PAIN
  9. CLONIDINE [Suspect]
     Indication: PAIN
     Route: 037
  10. KETAMINE HCL [Suspect]
     Indication: PAIN
     Route: 037
  11. BUPIVACAINE [Suspect]
     Indication: PAIN
     Route: 037
  12. NALOXONE [Concomitant]
     Indication: PAIN
     Route: 037
  13. NALOXONE [Concomitant]
     Dosage: 50NG
     Route: 037
  14. NALOXONE [Concomitant]
     Route: 037

REACTIONS (2)
  - DEPRESSED MOOD [None]
  - DRUG INEFFECTIVE [None]
